FAERS Safety Report 15455127 (Version 1)
Quarter: 2018Q4

REPORT INFORMATION
  Report Type: Report from Study
  Country: DE (occurrence: DE)
  Receive Date: 20181002
  Receipt Date: 20181002
  Transmission Date: 20190204
  Serious: Yes (Other)
  Sender: FDA-Public Use
  Company Number: DE-TEVA-2018-DE-959709

PATIENT
  Age: 17 Year
  Sex: Female

DRUGS (10)
  1. CARBOPLATIN. [Concomitant]
     Active Substance: CARBOPLATIN
     Indication: NASOPHARYNGEAL CANCER
     Route: 065
  2. COTRIMOXAZOLE [Concomitant]
     Active Substance: SULFAMETHOXAZOLE\TRIMETHOPRIM
     Indication: ANTIBIOTIC PROPHYLAXIS
     Dosage: FOR 28 DAYS
     Route: 065
  3. AMPHOTERICIN-B [Concomitant]
     Active Substance: AMPHOTERICIN B
     Indication: ANTIFUNGAL PROPHYLAXIS
     Dosage: FOR 29 DAYS
     Route: 065
  4. CISPLATIN. [Suspect]
     Active Substance: CISPLATIN
     Indication: NASOPHARYNGEAL CANCER
     Route: 065
  5. CYCLOPHOSPHAMIDE. [Suspect]
     Active Substance: CYCLOPHOSPHAMIDE
     Indication: BONE MARROW CONDITIONING REGIMEN
     Route: 065
     Dates: start: 20080604
  6. TREOSULFAN [Suspect]
     Active Substance: TREOSULFAN
     Indication: BONE MARROW CONDITIONING REGIMEN
     Route: 065
     Dates: start: 20080604
  7. DOCETAXEL. [Concomitant]
     Active Substance: DOCETAXEL
     Indication: NASOPHARYNGEAL CANCER
     Route: 065
  8. 5-FLUOROURACIL [Concomitant]
     Active Substance: FLUOROURACIL
     Indication: NASOPHARYNGEAL CANCER
     Route: 065
  9. METRONIDAZOLE. [Concomitant]
     Active Substance: METRONIDAZOLE
     Indication: ANTIBIOTIC PROPHYLAXIS
     Dosage: FOR 29 DAYS
     Route: 065
  10. ACYCLOVIR. [Concomitant]
     Active Substance: ACYCLOVIR
     Indication: ANTIVIRAL PROPHYLAXIS
     Route: 065

REACTIONS (4)
  - Mucosal inflammation [Unknown]
  - Tinnitus [Unknown]
  - Transaminases increased [Recovered/Resolved]
  - Nausea [Unknown]
